FAERS Safety Report 21077358 (Version 2)
Quarter: 2022Q4

REPORT INFORMATION
  Report Type: Spontaneous
  Country: IL (occurrence: IL)
  Receive Date: 20220713
  Receipt Date: 20221215
  Transmission Date: 20230113
  Serious: Yes (Hospitalization, Other)
  Sender: FDA-Public Use
  Company Number: IL-009507513-2207ISR003761

PATIENT
  Sex: Male

DRUGS (2)
  1. KEYTRUDA [Suspect]
     Active Substance: PEMBROLIZUMAB
     Indication: Renal cancer metastatic
     Dosage: CYCLICAL
  2. LENVATINIB MESYLATE [Suspect]
     Active Substance: LENVATINIB MESYLATE
     Indication: Renal cancer metastatic
     Dosage: CYCLICAL

REACTIONS (7)
  - Glomerulonephritis rapidly progressive [Recovered/Resolved]
  - Renal impairment [Recovered/Resolved]
  - Renal failure [Recovered/Resolved]
  - Renal injury [Recovered/Resolved]
  - Vasculitis [Recovered/Resolved]
  - Paraneoplastic syndrome [Recovered/Resolved]
  - Malignant neoplasm progression [Unknown]
